FAERS Safety Report 5530159-4 (Version None)
Quarter: 2007Q4

REPORT INFORMATION
  Report Type: 
  Country: None (occurrence: None)
  Receive Date: 20071130
  Receipt Date: 20071119
  Transmission Date: 20080405
  Serious: Yes (Hospitalization)
  Sender: FDA-Public Use
  Company Number: FR-JNJFOC-20071006970

PATIENT
  Age: 81 Year
  Sex: Male

DRUGS (1)
  1. TAVANIC [Suspect]
     Indication: URINARY TRACT INFECTION
     Route: 048
     Dates: start: 20070903

REACTIONS (4)
  - CONFUSIONAL STATE [None]
  - CONVULSION [None]
  - DISSOCIATIVE IDENTITY DISORDER [None]
  - DYSKINESIA [None]
